FAERS Safety Report 26074636 (Version 1)
Quarter: 2025Q4

REPORT INFORMATION
  Report Type: Spontaneous
  Country: EU (occurrence: EU)
  Receive Date: 20251121
  Receipt Date: 20251121
  Transmission Date: 20260118
  Serious: Yes (Hospitalization)
  Sender: RANBAXY
  Company Number: EU-SUN PHARMACEUTICAL INDUSTRIES LTD-2025RR-537235

PATIENT
  Age: 79 Year
  Sex: Male
  Weight: 57.3 kg

DRUGS (2)
  1. ERTAPENEM [Suspect]
     Active Substance: ERTAPENEM
     Indication: Prostatitis Escherichia coli
     Dosage: 1000 MILLIGRAM, DAILY
     Route: 040
     Dates: start: 20250724, end: 20250726
  2. ERTAPENEM [Suspect]
     Active Substance: ERTAPENEM
     Dosage: 500 MILLIGRAM, DAILY
     Route: 065
     Dates: start: 20250726, end: 20250728

REACTIONS (1)
  - Epilepsy [Recovered/Resolved]

NARRATIVE: CASE EVENT DATE: 20250726
